FAERS Safety Report 9786681 (Version 2)
Quarter: 2014Q2

REPORT INFORMATION
  Report Type: Spontaneous
  Country: US (occurrence: US)
  Receive Date: 20131227
  Receipt Date: 20140415
  Transmission Date: 20141212
  Serious: No
  Sender: FDA-Public Use
  Company Number: US-009507513-1312USA008430

PATIENT
  Sex: Female
  Weight: 74.83 kg

DRUGS (2)
  1. OXYTROL FOR WOMEN [Suspect]
     Indication: URINARY INCONTINENCE
     Dosage: 1 DF, Q4D
     Route: 062
     Dates: start: 201309
  2. WARFARIN [Concomitant]
     Indication: PULMONARY EMBOLISM
     Dosage: UNK, UNKNOWN

REACTIONS (1)
  - Clot retraction time shortened [Unknown]
